FAERS Safety Report 6011374-2 (Version None)
Quarter: 2008Q4

REPORT INFORMATION
  Report Type: 
  Country: None (occurrence: None)
  Receive Date: 20081218
  Receipt Date: 20080222
  Transmission Date: 20090506
  Serious: Yes (Other)
  Sender: FDA-Public Use
  Company Number: US-BAXTER-2008BH010298

PATIENT
  Sex: Male

DRUGS (3)
  1. IMMUNE GLOBULIN INTRAVENOUS (HUMAN) [Suspect]
     Indication: PRIMARY IMMUNODEFICIENCY SYNDROME
     Dosage: DOSE UNIT:UNKNOWN
     Route: 042
     Dates: start: 19890101
  2. ACETAMINOPHEN [Concomitant]
     Indication: PREMEDICATION
     Route: 065
  3. IBUPROFEN [Concomitant]
     Indication: PREMEDICATION
     Route: 065

REACTIONS (2)
  - ANAPHYLACTOID REACTION [None]
  - DRUG INTOLERANCE [None]
